FAERS Safety Report 8245284 (Version 4)
Quarter: 2014Q1

REPORT INFORMATION
  Report Type: Report from Study
  Country: US (occurrence: US)
  Receive Date: 20111115
  Receipt Date: 20140328
  Transmission Date: 20141002
  Serious: Yes (Hospitalization, Other)
  Sender: FDA-Public Use
  Company Number: US-ACTELION-A-US2011-56901

PATIENT
  Age: 83 Year
  Sex: Female

DRUGS (4)
  1. TRACLEER [Suspect]
     Indication: PULMONARY ARTERIAL HYPERTENSION
     Dosage: UNK
     Route: 048
  2. ASA [Concomitant]
  3. ADCIRCA [Concomitant]
  4. COUMADIN [Concomitant]

REACTIONS (11)
  - Fall [Unknown]
  - Pelvic fracture [Unknown]
  - Cerebrovascular accident [Recovering/Resolving]
  - Dementia Alzheimer^s type [Unknown]
  - Memory impairment [Recovering/Resolving]
  - Asthma [Unknown]
  - Bronchitis [Unknown]
  - Gait disturbance [Recovering/Resolving]
  - Thinking abnormal [Unknown]
  - Speech disorder [Recovering/Resolving]
  - Physiotherapy [Recovering/Resolving]
